FAERS Safety Report 4751101-X (Version None)
Quarter: 2005Q3

REPORT INFORMATION
  Report Type: 
  Country: None (occurrence: None)
  Receive Date: 20050824
  Receipt Date: 20050510
  Transmission Date: 20060218
  Serious: No
  Sender: FDA-Public Use
  Company Number: US-GLAXOSMITHKLINE-A0557948A

PATIENT
  Age: 15 Year
  Sex: Female

DRUGS (3)
  1. LAMICTAL [Suspect]
     Dosage: 100MG PER DAY
     Route: 048
     Dates: start: 19950101
  2. FLUORACIZINE [Concomitant]
  3. GABITRIL [Concomitant]

REACTIONS (3)
  - AURA [None]
  - PRURITUS [None]
  - RASH [None]
